FAERS Safety Report 9401593 (Version 1)
Quarter: 2013Q3

REPORT INFORMATION
  Report Type: Report from Study
  Country: AU (occurrence: AU)
  Receive Date: 20130716
  Receipt Date: 20130716
  Transmission Date: 20140515
  Serious: Yes (Life-Threatening, Hospitalization)
  Sender: FDA-Public Use
  Company Number: AU-ROCHE-1247125

PATIENT
  Sex: Female
  Weight: 244.8 kg

DRUGS (6)
  1. OMALIZUMAB [Suspect]
     Indication: ASTHMA
     Route: 058
     Dates: start: 20120202
  2. SEREVENT [Concomitant]
     Route: 065
     Dates: start: 20100707
  3. FLIXOTIDE [Concomitant]
     Route: 065
     Dates: start: 20100707
  4. DIAMICRON MR [Concomitant]
     Route: 065
     Dates: start: 20070101
  5. LANTUS [Concomitant]
     Route: 065
     Dates: start: 20110101
  6. SOMAC (AUSTRALIA) [Concomitant]
     Route: 065
     Dates: start: 20100101

REACTIONS (1)
  - Anaphylactic reaction [Recovered/Resolved]
